FAERS Safety Report 14959471 (Version 1)
Quarter: 2018Q2

REPORT INFORMATION
  Report Type: Spontaneous
  Country: US (occurrence: US)
  Receive Date: 20180510
  Receipt Date: 20180510
  Transmission Date: 20180711
  Serious: No
  Sender: FDA-Public Use
  Company Number: None

PATIENT
  Age: 27 Year
  Sex: Female

DRUGS (1)
  1. HAEGARDA [Suspect]
     Active Substance: HUMAN C1-ESTERASE INHIBITOR
     Dates: start: 20180203

REACTIONS (3)
  - Maternal drugs affecting foetus [None]
  - Maternal exposure timing unspecified [None]
  - Caesarean section [None]

NARRATIVE: CASE EVENT DATE: 20180510
